FAERS Safety Report 15253528 (Version 1)
Quarter: 2018Q3

REPORT INFORMATION
  Report Type: Report from Study
  Country: None (occurrence: BR)
  Receive Date: 20180808
  Receipt Date: 20180808
  Transmission Date: 20181010
  Serious: Yes (Hospitalization, Other)
  Sender: FDA-Public Use
  Company Number: BR-ABBVIE-18K-020-2440760-00

PATIENT
  Age: 51 Year
  Sex: Female
  Weight: 104 kg

DRUGS (5)
  1. PREDSIM [Suspect]
     Active Substance: PREDNISOLONE
     Indication: ANKYLOSING SPONDYLITIS
     Route: 065
     Dates: start: 201803, end: 20180717
  2. HUMIRA [Suspect]
     Active Substance: ADALIMUMAB
     Indication: ANKYLOSING SPONDYLITIS
     Route: 058
  3. REMICADE [Suspect]
     Active Substance: INFLIXIMAB
     Indication: ANKYLOSING SPONDYLITIS
     Dosage: 3 LOADING DOSES ONLY.
     Route: 065
  4. HUMIRA [Suspect]
     Active Substance: ADALIMUMAB
     Route: 058
     Dates: start: 201804
  5. ENBREL [Suspect]
     Active Substance: ETANERCEPT
     Indication: ANKYLOSING SPONDYLITIS
     Route: 065

REACTIONS (13)
  - Ankylosing spondylitis [Unknown]
  - Impaired driving ability [Unknown]
  - Emotional disorder [Unknown]
  - Blood pressure fluctuation [Unknown]
  - Confusional state [Unknown]
  - Wound [Unknown]
  - Pain [Unknown]
  - Oral disorder [Unknown]
  - Vision blurred [Unknown]
  - Psoriasis [Unknown]
  - Hypophagia [Unknown]
  - Gait inability [Unknown]
  - Pain [Unknown]

NARRATIVE: CASE EVENT DATE: 201803
